FAERS Safety Report 4826298-3 (Version None)
Quarter: 2005Q4

REPORT INFORMATION
  Report Type: 
  Country: None (occurrence: None)
  Receive Date: 20051109
  Receipt Date: 20051029
  Transmission Date: 20060501
  Serious: Yes (Disabling, Other)
  Sender: FDA-Public Use
  Company Number: 2005110287

PATIENT
  Age: 58 Year
  Sex: Female
  Weight: 73.9363 kg

DRUGS (5)
  1. LIPITOR [Suspect]
     Indication: HYPERLIPIDAEMIA
     Dosage: 10 MG (10 MG, 1 IN 1 D), ORAL
     Route: 048
     Dates: start: 20020115, end: 20050721
  2. LISINOPRIL [Concomitant]
  3. VALTREX [Concomitant]
  4. PROVERA [Concomitant]
  5. CLIMARA [Concomitant]

REACTIONS (10)
  - ASTHENIA [None]
  - DENERVATION ATROPHY [None]
  - ELECTROMYOGRAM ABNORMAL [None]
  - HYPOAESTHESIA [None]
  - LUMBAR SPINAL STENOSIS [None]
  - MUSCLE SPASMS [None]
  - NEUROPATHY [None]
  - PERONEAL NERVE PALSY [None]
  - RADICULOPATHY [None]
  - TOTAL CHOLESTEROL/HDL RATIO ABNORMAL [None]
